FAERS Safety Report 20661875 (Version 2)
Quarter: 2022Q2

REPORT INFORMATION
  Report Type: Spontaneous
  Country: FR (occurrence: FR)
  Receive Date: 20220401
  Receipt Date: 20220413
  Transmission Date: 20220721
  Serious: Yes (Other)
  Sender: FDA-Public Use
  Company Number: None

PATIENT
  Age: 49 Year
  Sex: Male
  Weight: 105 kg

DRUGS (12)
  1. CLOPIDOGREL BESILATE [Suspect]
     Active Substance: CLOPIDOGREL BESILATE
     Indication: Ischaemic stroke
     Dosage: 1DF,FREQUENCY TIME 1DAYS
     Route: 048
     Dates: start: 2020
  2. DIAZEPAM [Suspect]
     Active Substance: DIAZEPAM
     Indication: Bipolar I disorder
     Dosage: 1DF,FREQUENCY TIME 1DAYS
     Route: 048
     Dates: start: 2020
  3. GABAPENTIN [Suspect]
     Active Substance: GABAPENTIN
     Indication: Pain
     Dosage: 1DF,FREQUENCY TIME 1DAYS
     Route: 048
     Dates: start: 2020
  4. QUETIAPINE [Suspect]
     Active Substance: QUETIAPINE
     Indication: Bipolar I disorder
     Dosage: 1DF,FREQUENCY TIME 1DAYS
     Route: 048
     Dates: start: 2020
  5. PANTOPRAZOLE [Suspect]
     Active Substance: PANTOPRAZOLE
     Indication: Prophylaxis
     Dosage: 1DF, FREQUENCY TIME 1DAYS
     Route: 048
     Dates: start: 2020
  6. ELIQUIS [Suspect]
     Active Substance: APIXABAN
     Indication: Ischaemic stroke
     Dosage: 1DF,FREQUENCY TIME 1DAYS
     Route: 048
     Dates: start: 2020
  7. CRESTOR [Concomitant]
     Active Substance: ROSUVASTATIN CALCIUM
  8. BUDESONIDE [Concomitant]
     Active Substance: BUDESONIDE
  9. ZOPICLONE [Concomitant]
     Active Substance: ZOPICLONE
  10. LOXAPINE [Concomitant]
     Active Substance: LOXAPINE
  11. TRIMEPRAZINE [Concomitant]
     Active Substance: TRIMEPRAZINE
  12. LEVETIRACETAM [Concomitant]
     Active Substance: LEVETIRACETAM

REACTIONS (1)
  - Immune thrombocytopenia [Not Recovered/Not Resolved]

NARRATIVE: CASE EVENT DATE: 20220201
